FAERS Safety Report 6511761-X (Version None)
Quarter: 2009Q4

REPORT INFORMATION
  Report Type: 
  Country: None (occurrence: None)
  Receive Date: 20091222
  Receipt Date: 20090403
  Transmission Date: 20100525
  Serious: Yes (Other)
  Sender: FDA-Public Use
  Company Number: US-ASTRAZENECA-2009UW08513

PATIENT
  Sex: Male

DRUGS (5)
  1. CRESTOR [Suspect]
     Route: 048
  2. MICARDIS [Concomitant]
  3. CATAPRES [Concomitant]
  4. HYDROCHLOROTHIAZIDE [Concomitant]
  5. VITAMIN D [Concomitant]

REACTIONS (3)
  - BLOOD CREATINE PHOSPHOKINASE INCREASED [None]
  - MYALGIA [None]
  - MYOPATHY [None]
